FAERS Safety Report 14161234 (Version 4)
Quarter: 2018Q2

REPORT INFORMATION
  Report Type: Spontaneous
  Country: JP (occurrence: JP)
  Receive Date: 20171106
  Receipt Date: 20180427
  Transmission Date: 20180711
  Serious: Yes (Other)
  Sender: FDA-Public Use
  Company Number: JP-GLAXOSMITHKLINE-JP2017JPN167873

PATIENT
  Sex: Male

DRUGS (2)
  1. FLUNASE [Suspect]
     Active Substance: FLUTICASONE PROPIONATE
     Indication: SEASONAL ALLERGY
     Dosage: 50 ?G, BID
     Route: 045
     Dates: end: 20160622
  2. FLUNASE [Suspect]
     Active Substance: FLUTICASONE PROPIONATE
     Indication: RHINITIS

REACTIONS (1)
  - Oesophageal candidiasis [Unknown]
